FAERS Safety Report 17998191 (Version 1)
Quarter: 2020Q3

REPORT INFORMATION
  Report Type: Spontaneous
  Country: US (occurrence: US)
  Receive Date: 20200708
  Receipt Date: 20200708
  Transmission Date: 20201103
  Serious: No
  Sender: FDA-Public Use
  Company Number: US-AMGEN-USASP2020092415

PATIENT
  Age: 22 Year
  Sex: Female

DRUGS (1)
  1. OTEZLA [Suspect]
     Active Substance: APREMILAST
     Indication: LICHENOID KERATOSIS
     Dosage: UNK
     Route: 065
     Dates: start: 20170906, end: 20180220

REACTIONS (1)
  - Off label use [Unknown]
